FAERS Safety Report 9624039 (Version 6)
Quarter: 2014Q2

REPORT INFORMATION
  Report Type: Spontaneous
  Country: US (occurrence: US)
  Receive Date: 20131015
  Receipt Date: 20140404
  Transmission Date: 20141212
  Serious: Yes (Hospitalization, Disabling, Other)
  Sender: FDA-Public Use
  Company Number: US-009507513-1310USA004392

PATIENT
  Sex: Female
  Weight: 78.5 kg

DRUGS (3)
  1. FOSAMAX [Suspect]
     Indication: OSTEOPOROSIS PROPHYLAXIS
     Dosage: 70 MG, QW
     Route: 048
     Dates: start: 20020422, end: 20060623
  2. FOSAMAX PLUS D [Suspect]
     Indication: OSTEOPOROSIS PROPHYLAXIS
     Dosage: 70MG/2800IU
     Route: 048
     Dates: start: 20061101, end: 20080105
  3. ALENDRONATE SODIUM [Suspect]
     Indication: OSTEOPOROSIS PROPHYLAXIS
     Dosage: 70 MG, UNK
     Route: 048
     Dates: start: 20080329, end: 20100819

REACTIONS (39)
  - Open reduction of fracture [Unknown]
  - Open reduction of fracture [Unknown]
  - Low turnover osteopathy [Unknown]
  - Ulna fracture [Not Recovered/Not Resolved]
  - Anaemia postoperative [Unknown]
  - Cholecystectomy [Unknown]
  - Myocardial infarction [Unknown]
  - Open reduction of fracture [Unknown]
  - Open reduction of fracture [Unknown]
  - Femur fracture [Not Recovered/Not Resolved]
  - Atypical femur fracture [Recovered/Resolved]
  - Muscle strain [Unknown]
  - Fall [Unknown]
  - Hypertension [Not Recovered/Not Resolved]
  - Gout [Unknown]
  - Hyperlipidaemia [Unknown]
  - Elbow operation [Unknown]
  - Cardiomegaly [Unknown]
  - Arteriosclerosis coronary artery [Unknown]
  - Hepatic cyst [Not Recovered/Not Resolved]
  - Fracture nonunion [Not Recovered/Not Resolved]
  - Joint effusion [Unknown]
  - Osteoarthritis [Unknown]
  - Periprosthetic fracture [Unknown]
  - White blood cell count increased [Unknown]
  - Osteolysis [Unknown]
  - Device connection issue [Unknown]
  - Hypercholesterolaemia [Not Recovered/Not Resolved]
  - Corneal abrasion [Unknown]
  - Osteoporosis [Not Recovered/Not Resolved]
  - Osteoarthritis [Unknown]
  - Vitamin D deficiency [Unknown]
  - Fracture nonunion [Unknown]
  - Ligament sprain [Recovered/Resolved]
  - Osteoarthritis [Unknown]
  - Asthenia [Unknown]
  - Abdominal pain [Unknown]
  - Back pain [Unknown]
  - Gastrooesophageal reflux disease [Not Recovered/Not Resolved]
